FAERS Safety Report 19180413 (Version 2)
Quarter: 2021Q2

REPORT INFORMATION
  Report Type: Spontaneous
  Country: JP (occurrence: JP)
  Receive Date: 20210426
  Receipt Date: 20210602
  Transmission Date: 20210717
  Serious: Yes (Other)
  Sender: FDA-Public Use
  Company Number: JP-AMGEN-JPNSP2021061697

PATIENT
  Age: 72 Year
  Sex: Female

DRUGS (4)
  1. EVENITY [Suspect]
     Active Substance: ROMOSOZUMAB-AQQG
     Indication: OSTEOPOROSIS
     Dosage: 210 MILLIGRAM
     Route: 058
  2. ELDECALCITOL [Concomitant]
     Active Substance: ELDECALCITOL
     Route: 048
  3. EVENITY [Suspect]
     Active Substance: ROMOSOZUMAB-AQQG
     Indication: SPINAL FRACTURE
  4. EVENITY [Suspect]
     Active Substance: ROMOSOZUMAB-AQQG
     Indication: BACK PAIN

REACTIONS (1)
  - Spinal fracture [Unknown]
